FAERS Safety Report 25601106 (Version 3)
Quarter: 2025Q3

REPORT INFORMATION
  Report Type: Report from Study
  Country: EG (occurrence: EG)
  Receive Date: 20250724
  Receipt Date: 20250903
  Transmission Date: 20251021
  Serious: Yes (Hospitalization, Other)
  Sender: BIOGEN
  Company Number: EG-BIOGEN-2025BI01317762

PATIENT
  Age: 0 Year
  Sex: Male
  Weight: 1.9 kg

DRUGS (4)
  1. TYSABRI [Suspect]
     Active Substance: NATALIZUMAB
     Indication: Maternal exposure timing unspecified
     Route: 050
     Dates: start: 20240902, end: 20250502
  2. TYSABRI [Suspect]
     Active Substance: NATALIZUMAB
     Route: 050
     Dates: start: 202507
  3. Nestogen [Concomitant]
     Indication: Product used for unknown indication
     Route: 050
  4. Vi-drop [Concomitant]
     Indication: Product used for unknown indication
     Route: 050

REACTIONS (11)
  - Low birth weight baby [Recovered/Resolved]
  - Lower respiratory tract infection bacterial [Recovered/Resolved]
  - Bacterial sepsis [Recovered/Resolved]
  - Premature baby [Recovered/Resolved]
  - Asthenia [Unknown]
  - Poor feeding infant [Unknown]
  - Jaundice neonatal [Unknown]
  - Foetal exposure during pregnancy [Recovered/Resolved]
  - Exposure via breast milk [Unknown]
  - Nasal congestion [Unknown]
  - Haemoglobin decreased [Unknown]

NARRATIVE: CASE EVENT DATE: 20241001
